FAERS Safety Report 7255766-2 (Version None)
Quarter: 2011Q1

REPORT INFORMATION
  Report Type: 
  Country: None (occurrence: None)
  Receive Date: 20110129
  Receipt Date: 20100831
  Transmission Date: 20110831
  Serious: No
  Sender: FDA-Public Use
  Company Number: US-ABBOTT-10P-163-0667618-00

PATIENT
  Age: 37 Year
  Sex: Female

DRUGS (14)
  1. HUMIRA [Suspect]
     Dates: start: 20100401
  2. MTX [Concomitant]
     Indication: SARCOIDOSIS
     Dosage: 8 TABS WEEKLY
  3. FOLIC ACID [Concomitant]
     Indication: SUPPLEMENTATION THERAPY
  4. SINGULAIR [Concomitant]
     Indication: ASTHMA
  5. AMITRIPTYLINE HCL [Concomitant]
     Indication: INSOMNIA
  6. CYCLOSPORINE [Concomitant]
     Indication: SARCOIDOSIS
  7. VITAMIN D [Concomitant]
  8. AMLODIPINE [Concomitant]
     Indication: HYPERTENSION
  9. PREDNISONE [Concomitant]
     Indication: SARCOIDOSIS
  10. LOSARTAN POTASSIUM [Concomitant]
     Indication: HYPERTENSION
  11. SINGULAIR [Concomitant]
     Indication: HYPERSENSITIVITY
  12. AMITRIPTYLINE HCL [Concomitant]
     Indication: MIGRAINE
  13. OMEPRAZOLE [Concomitant]
     Indication: ABDOMINAL DISCOMFORT
  14. VENTOLIN [Concomitant]
     Indication: ASTHMA

REACTIONS (3)
  - DEVICE MALFUNCTION [None]
  - COUGH [None]
  - MALAISE [None]
